FAERS Safety Report 8049331-7 (Version None)
Quarter: 2012Q1

REPORT INFORMATION
  Report Type: 
  Country: None (occurrence: None)
  Receive Date: 20120117
  Receipt Date: 20120116
  Transmission Date: 20120608
  Serious: Yes (Hospitalization, Disabling, Other)
  Sender: FDA-Public Use
  Company Number: FR-ROCHE-1014375

PATIENT
  Age: 51 Year
  Sex: Female
  Weight: 59 kg

DRUGS (6)
  1. LEVOTHYROXINE SODIUM [Concomitant]
     Indication: HYPOTHYROIDISM
     Dosage: 2000
     Route: 048
  2. LEVOTHYROXINE SODIUM [Concomitant]
     Dosage: 125
     Route: 048
  3. COPEGUS [Suspect]
     Indication: HEPATITIS C
     Route: 048
     Dates: start: 20101105, end: 20110425
  4. LEVOTHYROXINE SODIUM [Concomitant]
     Dosage: 100
     Route: 048
  5. PEGASYS [Suspect]
     Indication: HEPATITIS C
     Dates: start: 20101105, end: 20110425
  6. EFFEXOR [Concomitant]

REACTIONS (4)
  - FATIGUE [None]
  - TENOSYNOVITIS STENOSANS [None]
  - TRANSIENT ACANTHOLYTIC DERMATOSIS [None]
  - BLOOD THYROID STIMULATING HORMONE DECREASED [None]
